FAERS Safety Report 22203666 (Version 2)
Quarter: 2023Q2

REPORT INFORMATION
  Report Type: Report from Study
  Country: GB (occurrence: GB)
  Receive Date: 20230412
  Receipt Date: 20230512
  Transmission Date: 20230722
  Serious: Yes (Death)
  Sender: FDA-Public Use
  Company Number: GB-ABBVIE-21P-167-3775750-00

PATIENT
  Age: 74 Year
  Sex: Female

DRUGS (13)
  1. IBRUTINIB [Suspect]
     Active Substance: IBRUTINIB
     Indication: Diffuse large B-cell lymphoma
     Dosage: LAST DOSE PRIOR TO EVENT ON 10 FEB 2021
     Route: 048
     Dates: start: 20201126
  2. LENALIDOMIDE [Suspect]
     Active Substance: LENALIDOMIDE
     Indication: Diffuse large B-cell lymphoma
     Dosage: LAST DOSE PRIOR TO THE EVENT ON 10 FEB 2021
     Route: 048
     Dates: start: 20201126
  3. ATORVASTATIN [Concomitant]
     Active Substance: ATORVASTATIN
     Indication: Blood cholesterol increased
     Route: 048
     Dates: start: 20090408
  4. ASPIRIN [Concomitant]
     Active Substance: ASPIRIN
     Indication: Pain
     Route: 048
     Dates: start: 20090408
  5. LANSOPRAZOLE [Concomitant]
     Active Substance: LANSOPRAZOLE
     Indication: Hyperchlorhydria
     Route: 048
     Dates: start: 20110201
  6. BISOPROLOL [Concomitant]
     Active Substance: BISOPROLOL
     Indication: Hypertension
     Route: 048
     Dates: start: 20110505
  7. LEVOTHYROXINE [Concomitant]
     Active Substance: LEVOTHYROXINE
     Indication: Hypothyroidism
     Route: 048
     Dates: start: 20120704
  8. AMITRIPTYLINE [Concomitant]
     Active Substance: AMITRIPTYLINE
     Indication: Neuralgia
     Route: 048
     Dates: start: 20180820
  9. NITROGLYCERIN [Concomitant]
     Active Substance: NITROGLYCERIN
     Indication: Hypertension
     Dosage: TIME INTERVAL: AS NECESSARY
     Route: 060
     Dates: start: 20070525
  10. BENZYDAMINE [Concomitant]
     Active Substance: BENZYDAMINE
     Indication: Acoustic neuroma
     Dosage: TIME INTERVAL: AS NECESSARY: ORAL SPRAY
     Dates: start: 20110927
  11. Vita-POS [Concomitant]
     Indication: Blepharitis
     Dosage: ON
     Dates: start: 20171019
  12. OXYAL [Concomitant]
     Indication: Blepharitis
     Dosage: EYE DROPS, QDS
     Dates: start: 20171019
  13. CEPHALEXIN [Concomitant]
     Active Substance: CEPHALEXIN
     Indication: Urinary tract infection
     Route: 048
     Dates: start: 20200701

REACTIONS (1)
  - Lip squamous cell carcinoma [Fatal]

NARRATIVE: CASE EVENT DATE: 20210211
